FAERS Safety Report 5303374-2 (Version None)
Quarter: 2007Q2

REPORT INFORMATION
  Report Type: 
  Country: None (occurrence: None)
  Receive Date: 20070420
  Receipt Date: 20070410
  Transmission Date: 20071010
  Serious: Yes (Other)
  Sender: FDA-Public Use
  Company Number: US-JNJFOC-20070301507

PATIENT
  Sex: Female
  Weight: 67.13 kg

DRUGS (1)
  1. FENTANYL TRANSDERMAL SYSTEM [Suspect]
     Indication: ARTHRITIS
     Route: 062

REACTIONS (7)
  - ASTHENIA [None]
  - CIRCULATORY COLLAPSE [None]
  - CONFUSIONAL STATE [None]
  - DIZZINESS [None]
  - FEELING ABNORMAL [None]
  - KIDNEY INFECTION [None]
  - SPEECH DISORDER [None]
